FAERS Safety Report 13708416 (Version 1)
Quarter: 2017Q2

REPORT INFORMATION
  Report Type: Spontaneous
  Country: ZA (occurrence: ZA)
  Receive Date: 20170630
  Receipt Date: 20170630
  Transmission Date: 20170830
  Serious: Yes (Hospitalization)
  Sender: FDA-Public Use
  Company Number: ZA-ABBVIE-17K-143-2022985-00

PATIENT
  Age: 23 Year
  Sex: Female

DRUGS (2)
  1. HUMIRA [Suspect]
     Active Substance: ADALIMUMAB
     Indication: CROHN^S DISEASE
     Route: 058
  2. HUMIRA [Suspect]
     Active Substance: ADALIMUMAB
     Route: 058
     Dates: end: 201601

REACTIONS (9)
  - Perineal pain [Recovered/Resolved]
  - Impaired healing [Unknown]
  - Lung disorder [Unknown]
  - Postoperative wound complication [Recovered/Resolved]
  - Disseminated tuberculosis [Recovered/Resolved]
  - Iron deficiency [Unknown]
  - Proctectomy [Unknown]
  - Purulent discharge [Recovered/Resolved]
  - Osteoporosis [Unknown]
